FAERS Safety Report 11289925 (Version 1)
Quarter: 2015Q3

REPORT INFORMATION
  Report Type: Spontaneous
  Country: DE (occurrence: DE)
  Receive Date: 20150721
  Receipt Date: 20150721
  Transmission Date: 20151125
  Serious: Yes (Other)
  Sender: FDA-Public Use
  Company Number: DE-MYLANLABS-2015M1023920

PATIENT

DRUGS (1)
  1. TAMOXIFEN [Suspect]
     Active Substance: TAMOXIFEN
     Indication: RETROPERITONEAL FIBROSIS
     Route: 065

REACTIONS (3)
  - Ureteric obstruction [Unknown]
  - Pain [Unknown]
  - Ovarian cyst [Unknown]
